FAERS Safety Report 24405882 (Version 2)
Quarter: 2025Q1

REPORT INFORMATION
  Report Type: Spontaneous
  Country: JP (occurrence: JP)
  Receive Date: 20241007
  Receipt Date: 20250207
  Transmission Date: 20250408
  Serious: Yes (Life-Threatening, Hospitalization, Other)
  Sender: ABBVIE
  Company Number: JP-ABBVIE-5949883

PATIENT
  Age: 45 Year
  Sex: Male
  Weight: 69 kg

DRUGS (6)
  1. RINVOQ [Suspect]
     Active Substance: UPADACITINIB
     Indication: Colitis ulcerative
     Route: 048
     Dates: start: 20240923, end: 20240928
  2. LEMBOREXANT [Concomitant]
     Active Substance: LEMBOREXANT
     Indication: Insomnia
     Dosage: 2 TABLET
     Route: 048
     Dates: start: 20240926, end: 20240928
  3. URSODIOL [Concomitant]
     Active Substance: URSODIOL
     Indication: Prophylaxis
     Route: 048
     Dates: start: 20240925, end: 20240928
  4. ESOMEPRAZOLE MAGNESIUM [Concomitant]
     Active Substance: ESOMEPRAZOLE MAGNESIUM
     Indication: Chronic gastritis
     Dosage: 20 MILLIGRAM
     Route: 048
     Dates: start: 20240923, end: 20240928
  5. SULFAMETHOXAZOLE AND TRIMETHOPRIM [Concomitant]
     Active Substance: SULFAMETHOXAZOLE\TRIMETHOPRIM
     Indication: Antifungal prophylaxis
     Dosage: 1 TABLET
     Route: 048
     Dates: start: 20240923, end: 20240928
  6. PREDNISOLONE SODIUM SUCCINATE [Concomitant]
     Active Substance: PREDNISOLONE SODIUM SUCCINATE
     Indication: Colitis ulcerative
     Dosage: 30 MILLIGRAM
     Route: 042
     Dates: start: 20240923, end: 20240928

REACTIONS (6)
  - Colitis ulcerative [Recovering/Resolving]
  - Therapeutic product effect decreased [Unknown]
  - Shock haemorrhagic [Unknown]
  - Heart rate abnormal [Unknown]
  - Gastrointestinal mucosal exfoliation [Unknown]
  - Thrombosis [Unknown]

NARRATIVE: CASE EVENT DATE: 20240101
